FAERS Safety Report 8168265-0 (Version None)
Quarter: 2012Q1

REPORT INFORMATION
  Report Type: 
  Country: None (occurrence: None)
  Receive Date: 20120227
  Receipt Date: 20120224
  Transmission Date: 20120608
  Serious: No
  Sender: FDA-Public Use
  Company Number: PHEH2012US003103

PATIENT
  Sex: Female

DRUGS (10)
  1. TASIGNA [Suspect]
     Indication: CHRONIC MYELOID LEUKAEMIA
     Dosage: 400 MG, BID
     Route: 048
     Dates: start: 20120114
  2. LORAZEPAM [Concomitant]
  3. TASIGNA [Suspect]
     Dosage: 200 MG, UNK
     Route: 048
  4. CALCIUM WITH VITAMIN D [Concomitant]
  5. FISH OIL [Concomitant]
  6. SYNTHROID [Concomitant]
  7. MULTI-VITAMINS [Concomitant]
  8. TASIGNA [Suspect]
     Dosage: UNK
     Dates: start: 20120123, end: 20120202
  9. FOLIC ACID [Concomitant]
  10. AZITHROMYCIN [Concomitant]

REACTIONS (3)
  - VOMITING [None]
  - NAUSEA [None]
  - MALAISE [None]
